FAERS Safety Report 16070904 (Version 1)
Quarter: 2019Q1

REPORT INFORMATION
  Report Type: Spontaneous
  Country: US (occurrence: US)
  Receive Date: 20190212
  Receipt Date: 20190212
  Transmission Date: 20190418
  Serious: Yes (Other)
  Sender: FDA-Public Use
  Company Number: None

PATIENT
  Age: 80 Year
  Sex: Female
  Weight: 74.39 kg

DRUGS (13)
  1. LEVOTHYROXINE. [Concomitant]
     Active Substance: LEVOTHYROXINE
  2. AMLODIPINE [Concomitant]
     Active Substance: AMLODIPINE BESYLATE
  3. FISH OIL [Concomitant]
     Active Substance: FISH OIL
  4. FOLIC ACID. [Concomitant]
     Active Substance: FOLIC ACID
  5. CALERM [Concomitant]
  6. ARTHRITIS PAIN RELIEVER [Concomitant]
     Active Substance: ACETAMINOPHEN
  7. VITAMIN C [Concomitant]
     Active Substance: ASCORBIC ACID
  8. POLYETHLENE GLYCOL [Concomitant]
  9. VITAMIN B12 [Concomitant]
     Active Substance: CYANOCOBALAMIN
  10. TURMERIA [Concomitant]
  11. LORATADINE. [Concomitant]
     Active Substance: LORATADINE
  12. VITAMIN D [Concomitant]
     Active Substance: CHOLECALCIFEROL
  13. CEPHALEXIN 500MG CAPSULES, 500 MG [Suspect]
     Active Substance: CEPHALEXIN
     Indication: PRURITUS
     Dosage: ?          QUANTITY:1 DF DOSAGE FORM;?
     Route: 048
     Dates: start: 20180728, end: 20180728

REACTIONS (2)
  - Vision blurred [None]
  - Swelling [None]

NARRATIVE: CASE EVENT DATE: 20180728
